FAERS Safety Report 9285320 (Version 1)
Quarter: 2013Q2

REPORT INFORMATION
  Report Type: Spontaneous
  Country: BR (occurrence: BR)
  Receive Date: 20130513
  Receipt Date: 20130513
  Transmission Date: 20140414
  Serious: Yes (Other)
  Sender: FDA-Public Use
  Company Number: BR-AMGEN-BRASP2013017980

PATIENT
  Age: 36 Year
  Sex: Female
  Weight: 60 kg

DRUGS (4)
  1. ENBREL [Suspect]
     Indication: ANKYLOSING SPONDYLITIS
     Dosage: 50 MG, ONCE WEEKLY
     Route: 058
     Dates: start: 201301
  2. OSCAL D                            /00944201/ [Concomitant]
     Indication: BONE DISORDER
     Dosage: UNK
     Dates: start: 201212
  3. DEPURA [Concomitant]
     Indication: BONE DISORDER
     Dosage: UNK
     Dates: start: 201212
  4. ISONIAZID [Concomitant]
     Indication: INFECTION
     Dosage: UNK
     Dates: start: 201212

REACTIONS (8)
  - Dengue fever [Unknown]
  - Eye pain [Unknown]
  - Headache [Unknown]
  - Pyrexia [Unknown]
  - Pruritus generalised [Unknown]
  - Injection site mass [Not Recovered/Not Resolved]
  - Injection site pruritus [Not Recovered/Not Resolved]
  - Injection site discolouration [Not Recovered/Not Resolved]
